FAERS Safety Report 4267105-X (Version None)
Quarter: 2004Q1

REPORT INFORMATION
  Report Type: 
  Country: None (occurrence: None)
  Receive Date: 20040107
  Receipt Date: 20031231
  Transmission Date: 20041129
  Serious: Yes (Hospitalization)
  Sender: FDA-Public Use
  Company Number: HQWYE834422DEC03

PATIENT
  Age: 55 Year
  Sex: Female
  Weight: 71.73 kg

DRUGS (5)
  1. MYLOTARG [Suspect]
     Indication: ACUTE MYELOID LEUKAEMIA
     Dosage: 15.8 MG 1X PER 1 DAY, INTRAVENOUS
     Route: 042
     Dates: start: 20031209, end: 20031209
  2. ZOLOFT [Concomitant]
  3. PROTONIX [Concomitant]
  4. ACYCLOVIR [Concomitant]
  5. TEQUIN [Concomitant]

REACTIONS (5)
  - ALANINE AMINOTRANSFERASE INCREASED [None]
  - ASPARTATE AMINOTRANSFERASE INCREASED [None]
  - BLOOD ALKALINE PHOSPHATASE INCREASED [None]
  - FATIGUE [None]
  - PANCYTOPENIA [None]
